FAERS Safety Report 7642760-2 (Version None)
Quarter: 2011Q3

REPORT INFORMATION
  Report Type: 
  Country: None (occurrence: None)
  Receive Date: 20110728
  Receipt Date: 20110720
  Transmission Date: 20111222
  Serious: Yes (Other)
  Sender: FDA-Public Use
  Company Number: PHHY2011US66071

PATIENT

DRUGS (2)
  1. PRAVASTATIN [Interacting]
     Dosage: UNK UKN, UNK
  2. PAROXETINE HCL [Suspect]
     Dosage: UNK UKN, UNK

REACTIONS (2)
  - DRUG INTERACTION [None]
  - BLOOD GLUCOSE INCREASED [None]
